FAERS Safety Report 9974781 (Version 1)
Quarter: 2014Q1

REPORT INFORMATION
  Report Type: Report from Study
  Country: US (occurrence: US)
  Receive Date: 20140306
  Receipt Date: 20140306
  Transmission Date: 20141002
  Serious: No
  Sender: FDA-Public Use
  Company Number: US-ABBVIE-13P-163-1159252-00

PATIENT
  Age: 47 Year
  Sex: Male

DRUGS (7)
  1. HUMIRA [Suspect]
     Indication: COLITIS ULCERATIVE
     Dates: start: 201306
  2. IMURAN [Concomitant]
     Indication: COLITIS ULCERATIVE
     Dosage: 200 MG DAILY
  3. ASACOL [Concomitant]
     Indication: COLITIS ULCERATIVE
  4. LIPITOR [Concomitant]
     Indication: HYPERTENSION
     Dosage: 10 MG DAILY
  5. UNKNOWN MEDICATION [Concomitant]
     Indication: HYPERTENSION
     Dosage: 50 MG DAILY
  6. TERAZAN [Concomitant]
     Indication: PRODUCT USED FOR UNKNOWN INDICATION
     Dosage: 5 MG DAILY
  7. CONCERTA [Concomitant]
     Indication: ATTENTION DEFICIT/HYPERACTIVITY DISORDER
     Dosage: 36 MG DAILY

REACTIONS (6)
  - Thrombosis [Not Recovered/Not Resolved]
  - Colitis ulcerative [Not Recovered/Not Resolved]
  - Pharyngitis streptococcal [Not Recovered/Not Resolved]
  - Fatigue [Not Recovered/Not Resolved]
  - Dizziness [Not Recovered/Not Resolved]
  - Flight of ideas [Not Recovered/Not Resolved]
